FAERS Safety Report 17991276 (Version 1)
Quarter: 2020Q3

REPORT INFORMATION
  Report Type: Report from Study
  Country: None (occurrence: BR)
  Receive Date: 20200708
  Receipt Date: 20200708
  Transmission Date: 20201103
  Serious: Yes (Other)
  Sender: FDA-Public Use
  Company Number: BR-ABBVIE-20P-020-3472967-00

PATIENT
  Sex: Female
  Weight: 20 kg

DRUGS (2)
  1. DEPAKENE [Suspect]
     Active Substance: VALPROIC ACID
     Indication: EPILEPSY
     Route: 065
  2. DEPAKENE [Suspect]
     Active Substance: VALPROIC ACID
     Dosage: REPORTER DOES NOT REMEMBER DETAILS ABOUT THE THERAPY
     Route: 065

REACTIONS (3)
  - Drug ineffective [Recovered/Resolved]
  - Seizure [Recovered/Resolved]
  - Product use issue [Unknown]
